FAERS Safety Report 5236077-3 (Version None)
Quarter: 2007Q1

REPORT INFORMATION
  Report Type: 
  Country: None (occurrence: None)
  Receive Date: 20070212
  Receipt Date: 20070202
  Transmission Date: 20070707
  Serious: Yes (Hospitalization)
  Sender: FDA-Public Use
  Company Number: US-AMGEN-US209540

PATIENT
  Age: 71 Year
  Sex: Male

DRUGS (5)
  1. ARANESP [Suspect]
     Indication: ANAEMIA OF MALIGNANT DISEASE
     Route: 065
  2. THALIDOMIDE [Suspect]
  3. DEXAMETHASONE [Suspect]
  4. WARFARIN SODIUM [Concomitant]
  5. ZOLEDRONIC ACID [Concomitant]

REACTIONS (4)
  - GENERALISED OEDEMA [None]
  - MENTAL IMPAIRMENT [None]
  - RENAL FAILURE ACUTE [None]
  - TUMOUR LYSIS SYNDROME [None]
